FAERS Safety Report 25082561 (Version 1)
Quarter: 2025Q1

REPORT INFORMATION
  Report Type: Spontaneous
  Country: IN (occurrence: IN)
  Receive Date: 20250317
  Receipt Date: 20250317
  Transmission Date: 20250408
  Serious: Yes (Other)
  Sender: PIRAMAL
  Company Number: IN-MLMSERVICE-20250303-PI420161-00145-4

PATIENT

DRUGS (8)
  1. SEVOFLURANE [Suspect]
     Active Substance: SEVOFLURANE
     Indication: Product used for unknown indication
  2. MIDAZOLAM [Suspect]
     Active Substance: MIDAZOLAM
     Indication: Premedication
  3. FENTANYL [Suspect]
     Active Substance: FENTANYL
     Indication: Premedication
  4. PROPOFOL [Suspect]
     Active Substance: PROPOFOL
     Indication: Induction of anaesthesia
  5. VECURONIUM [Suspect]
     Active Substance: VECURONIUM BROMIDE
     Indication: Induction of anaesthesia
  6. NITROUS OXIDE [Concomitant]
     Active Substance: NITROUS OXIDE
     Indication: Product used for unknown indication
  7. RINGER LACTATE                     /01126301/ [Concomitant]
     Indication: Product used for unknown indication
     Route: 042
  8. OXYGEN [Concomitant]
     Active Substance: OXYGEN
     Indication: Product used for unknown indication

REACTIONS (1)
  - Acute postoperative sialadenitis [Recovered/Resolved]
